FAERS Safety Report 8292056-3 (Version None)
Quarter: 2012Q2

REPORT INFORMATION
  Report Type: 
  Country: None (occurrence: None)
  Receive Date: 20120417
  Receipt Date: 20120213
  Transmission Date: 20120825
  Serious: No
  Sender: FDA-Public Use
  Company Number: US-ASTRAZENECA-2011SE65344

PATIENT
  Age: 81 Year
  Sex: Male

DRUGS (2)
  1. NEXIUM [Suspect]
     Route: 048
  2. CRESTOR [Suspect]
     Route: 048

REACTIONS (3)
  - BLOOD PRESSURE FLUCTUATION [None]
  - CARDIAC DISORDER [None]
  - MALAISE [None]
